FAERS Safety Report 6775413-3 (Version None)
Quarter: 2010Q2

REPORT INFORMATION
  Report Type: 
  Country: None (occurrence: None)
  Receive Date: 20100617
  Receipt Date: 20100607
  Transmission Date: 20101027
  Serious: Yes (Hospitalization, Other)
  Sender: FDA-Public Use
  Company Number: US-ABBOTT-10P-163-0649147-00

PATIENT
  Sex: Female
  Weight: 62.652 kg

DRUGS (6)
  1. SIMCOR [Suspect]
     Indication: BLOOD CHOLESTEROL INCREASED
     Dosage: 500/20 MG
     Route: 048
     Dates: start: 20080401, end: 20081001
  2. SIMCOR [Suspect]
     Route: 048
     Dates: start: 20100426, end: 20100506
  3. TYLENOL [Suspect]
     Indication: ARTHRALGIA
     Dosage: 8 TABLETS DAILY
     Route: 048
     Dates: start: 20081001, end: 20081001
  4. LIPITOR [Suspect]
     Indication: BLOOD CHOLESTEROL INCREASED
     Dates: start: 20081001, end: 20081001
  5. UNKNOWN BLOOD PRESSURE MEDICATION [Concomitant]
     Indication: HYPERTENSION
  6. SYNTHROID [Concomitant]
     Indication: DRUG USE FOR UNKNOWN INDICATION

REACTIONS (5)
  - ARTHRALGIA [None]
  - BLOOD URIC ACID INCREASED [None]
  - CARTILAGE ATROPHY [None]
  - HEADACHE [None]
  - HEPATIC ENZYME INCREASED [None]
